FAERS Safety Report 8998534 (Version 3)
Quarter: 2013Q1

REPORT INFORMATION
  Report Type: Report from Study
  Country: JP (occurrence: JP)
  Receive Date: 20130103
  Receipt Date: 20130215
  Transmission Date: 20140127
  Serious: Yes (Hospitalization)
  Sender: FDA-Public Use
  Company Number: JP-ROCHE-1176217

PATIENT
  Age: 79 Year
  Sex: Male

DRUGS (1)
  1. ALTEPLASE [Suspect]
     Indication: ISCHAEMIC STROKE
     Dosage: STRENGTH: SINGLE DOSE OF 0.6 MG/KG
     Route: 042

REACTIONS (2)
  - Cerebral infarction [Not Recovered/Not Resolved]
  - Neurological decompensation [Not Recovered/Not Resolved]
